FAERS Safety Report 17641717 (Version 2)
Quarter: 2020Q2

REPORT INFORMATION
  Report Type: Report from Study
  Country: AR (occurrence: AR)
  Receive Date: 20200407
  Receipt Date: 20200430
  Transmission Date: 20200713
  Serious: Yes (Hospitalization, Disabling, Other)
  Sender: FDA-Public Use
  Company Number: AR-ELI_LILLY_AND_COMPANY-AR202003001926

PATIENT
  Age: 35 Year
  Sex: Female
  Weight: 58 kg

DRUGS (10)
  1. DESOGESTREL [Concomitant]
     Active Substance: DESOGESTREL
     Indication: CONTRACEPTION
     Dosage: UNK, UNKNOWN
     Route: 065
     Dates: start: 20191209, end: 20200227
  2. FOLIC ACID. [Concomitant]
     Active Substance: FOLIC ACID
     Indication: DRUG TOXICITY PROPHYLAXIS
     Dosage: 5 MG, WEEKLY (1/W)
     Route: 065
     Dates: start: 2016, end: 20200227
  3. PREDNISONE. [Concomitant]
     Active Substance: PREDNISONE
     Dosage: UNK UNK, DAILY
     Route: 065
     Dates: start: 201909, end: 20200227
  4. MEPREDNISONE [Concomitant]
     Active Substance: MEPREDNISONE
     Dosage: 1 MG/KG, DAILY
     Route: 048
  5. METHOTREXATE. [Concomitant]
     Active Substance: METHOTREXATE
     Indication: SYSTEMIC LUPUS ERYTHEMATOSUS
     Dosage: 15 MG, WEEKLY (1/W)
     Route: 030
     Dates: start: 2016, end: 20200227
  6. BARICITINIB [Suspect]
     Active Substance: BARICITINIB
     Indication: SYSTEMIC LUPUS ERYTHEMATOSUS
     Dosage: UNK UNK, DAILY
     Route: 048
     Dates: start: 20200203, end: 20200227
  7. PLACEBO [Suspect]
     Active Substance: UNSPECIFIED INGREDIENT
     Indication: SYSTEMIC LUPUS ERYTHEMATOSUS
     Dosage: UNK, DAILY
     Route: 048
     Dates: start: 20200203, end: 20200227
  8. MEPREDNISONE [Concomitant]
     Active Substance: MEPREDNISONE
     Indication: SYSTEMIC LUPUS ERYTHEMATOSUS
     Dosage: UNK, UNKNOWN
     Route: 065
     Dates: start: 201909, end: 20200227
  9. HYDROXYCHLOROQUINE [Concomitant]
     Active Substance: HYDROXYCHLOROQUINE
     Indication: SYSTEMIC LUPUS ERYTHEMATOSUS
     Dosage: UNK UNK, UNKNOWN
     Route: 065
     Dates: start: 2013, end: 20200227
  10. PREDNISONE. [Concomitant]
     Active Substance: PREDNISONE
     Indication: SYSTEMIC LUPUS ERYTHEMATOSUS
     Dosage: 8 MG, DAILY
     Route: 065
     Dates: start: 2013

REACTIONS (1)
  - Herpes zoster [Not Recovered/Not Resolved]

NARRATIVE: CASE EVENT DATE: 20200302
